FAERS Safety Report 8860425 (Version 3)
Quarter: 2013Q1

REPORT INFORMATION
  Report Type: Spontaneous
  Country: US (occurrence: US)
  Receive Date: 20121025
  Receipt Date: 20130215
  Transmission Date: 20140127
  Serious: Yes (Death, Other)
  Sender: FDA-Public Use
  Company Number: PHEH2012US020589

PATIENT
  Age: 70 Year
  Sex: Male
  Weight: 72.11 kg

DRUGS (24)
  1. GILENYA [Suspect]
     Indication: MULTIPLE SCLEROSIS
     Dosage: 0.5 MG, QD
     Route: 048
     Dates: start: 20120419, end: 20120901
  2. NEXIUM [Concomitant]
     Dosage: 40 MG, QD
     Route: 048
  3. MIRTAZAPINE [Concomitant]
     Dosage: 15 MG, 1/2
     Route: 048
  4. AMANTADINE [Concomitant]
     Indication: FATIGUE
     Dosage: 100 MG, 2X
  5. AMANTADINE [Concomitant]
     Dosage: 100 MG, BID
     Route: 048
  6. SILODOSIN [Concomitant]
     Dosage: 4 MG, UNK
     Route: 048
  7. MULTIVITAMIN [Concomitant]
     Route: 048
  8. ONDANSETRON [Concomitant]
     Dosage: 4 MG, UNK
     Route: 048
  9. FAMOTIDINE [Concomitant]
     Dosage: 20 MG, 2X2
     Route: 048
  10. OXYCONTIN [Concomitant]
     Dosage: 10 MG, 2X
  11. OXYCODONE/APAP [Concomitant]
     Dosage: UNK UKN, UNK
     Route: 048
  12. SMZ-TMP [Concomitant]
     Dosage: SMZ 800, TMP 160, UNK
     Route: 048
  13. DICLOFENAC [Concomitant]
     Indication: ARTHRALGIA
     Dosage: 75 MG, BID
     Route: 048
  14. TRAMADOL [Concomitant]
     Indication: PAIN
     Dosage: 50 MG, PRN
     Route: 048
  15. ASA [Concomitant]
     Indication: PROPHYLAXIS
     Dosage: 81 MG, UNK
     Route: 048
  16. VIT D [Concomitant]
  17. RAPAFLO [Concomitant]
     Dosage: 8 MG, 1
  18. SENOKOT-S [Concomitant]
     Dosage: 10 MG, 2XB
  19. PANTOPRAZOLE [Concomitant]
     Dosage: 40 MG, 2X
  20. SENNA [Concomitant]
  21. DOCUSATE SODIUM [Concomitant]
     Dosage: 100 MG, 3X
  22. FLUCONAZOLE [Concomitant]
     Dosage: 100 MG, 2X DWN TO 1
  23. OXYCODONE [Concomitant]
     Dosage: 5 MG, 1-2 PER 2 HRS
  24. SULFAMETHOXAZOLE [Concomitant]

REACTIONS (17)
  - Pancreatic carcinoma [Fatal]
  - Abdominal pain [Fatal]
  - Metastatic neoplasm [Unknown]
  - Paraparesis [Unknown]
  - Oedema peripheral [Unknown]
  - Carotid artery disease [Unknown]
  - Decubitus ulcer [Unknown]
  - Multiple sclerosis relapse [Unknown]
  - Sensory disturbance [Unknown]
  - Arthralgia [Recovering/Resolving]
  - Gait disturbance [Recovering/Resolving]
  - Hypoaesthesia oral [Recovering/Resolving]
  - Dysstasia [Unknown]
  - Central nervous system lesion [Unknown]
  - Muscular weakness [Unknown]
  - Weight decreased [Unknown]
  - Heart rate increased [Unknown]
